FAERS Safety Report 9022554 (Version 1)
Quarter: 2013Q1

REPORT INFORMATION
  Report Type: Spontaneous
  Country: US (occurrence: US)
  Receive Date: 20130118
  Receipt Date: 20130118
  Transmission Date: 20140127
  Serious: Yes (Life-Threatening, Disabling)
  Sender: FDA-Public Use
  Company Number: US-GLAXOSMITHKLINE-A0974977A

PATIENT
  Age: 50 Year
  Sex: Male

DRUGS (6)
  1. PROMACTA [Suspect]
     Indication: IDIOPATHIC THROMBOCYTOPENIC PURPURA
     Dosage: 50MG PER DAY
     Route: 048
     Dates: start: 20120221
  2. PROGRAF [Concomitant]
  3. AMLODIPINE [Concomitant]
  4. INSULIN [Concomitant]
  5. FUROSEMIDE [Concomitant]
  6. PERCOCET [Concomitant]

REACTIONS (1)
  - Drug ineffective [Unknown]
